FAERS Safety Report 5349885-5 (Version None)
Quarter: 2007Q2

REPORT INFORMATION
  Report Type: 
  Country: None (occurrence: None)
  Receive Date: 20070607
  Receipt Date: 20070530
  Transmission Date: 20071010
  Serious: Yes (Hospitalization)
  Sender: FDA-Public Use
  Company Number: IT-PFIZER INC-2007006516

PATIENT
  Sex: Female

DRUGS (1)
  1. FRAGMIN [Suspect]
     Indication: PERIPHERAL VASCULAR DISORDER
     Route: 058
     Dates: start: 20061207, end: 20061221

REACTIONS (1)
  - HAEMATOMA INFECTION [None]
